FAERS Safety Report 5269786-0 (Version None)
Quarter: 2007Q1

REPORT INFORMATION
  Report Type: 
  Country: None (occurrence: None)
  Receive Date: 20070320
  Receipt Date: 20070308
  Transmission Date: 20070707
  Serious: Yes (Hospitalization, Other)
  Sender: FDA-Public Use
  Company Number: CA-ELI_LILLY_AND_COMPANY-CA200701000169

PATIENT
  Age: 81 Year
  Sex: Female

DRUGS (7)
  1. FORTEO [Suspect]
     Indication: OSTEOPOROSIS
     Dosage: 20 UG, DAILY (1/D)
     Route: 058
     Dates: start: 20060406, end: 20061202
  2. IBUPROFEN [Concomitant]
  3. ACETAMINOPHEN [Concomitant]
     Dosage: UNK, AS NEEDED
     Route: 054
  4. PANTOLOC                           /01263201/ [Concomitant]
     Dosage: 40 MG, 2/D
     Route: 048
  5. AMOXICILLIN [Concomitant]
     Dosage: 1000 MG, 2/D
     Route: 048
  6. CLARITHROMYCIN [Concomitant]
     Dosage: 500 MG, 2/D
     Route: 048
  7. METOPROLOL SUCCINATE [Concomitant]
     Dosage: 6.25 MG, 2/D
     Route: 048

REACTIONS (3)
  - GASTROINTESTINAL HAEMORRHAGE [None]
  - OEDEMA PERIPHERAL [None]
  - UNRESPONSIVE TO STIMULI [None]
